FAERS Safety Report 8101757-9 (Version None)
Quarter: 2012Q1

REPORT INFORMATION
  Report Type: 
  Country: None (occurrence: None)
  Receive Date: 20120131
  Receipt Date: 20120123
  Transmission Date: 20120608
  Serious: Yes (Other)
  Sender: FDA-Public Use
  Company Number: PHHY2011US60891

PATIENT
  Sex: Female

DRUGS (10)
  1. LACTULOSE [Concomitant]
     Dosage: UNK UKN, OT
  2. NAPROSYN [Concomitant]
     Dosage: UNK UKN, OT
  3. LORTAB [Concomitant]
     Dosage: UNK UKN, PRN
  4. AVONEX [Concomitant]
     Dosage: UNK UKN, UNK
  5. LIPITOR [Concomitant]
     Dosage: UNK UKN, OT
  6. LISINOPRIL [Concomitant]
     Dosage: UNK UKN, OT
  7. GILENYA [Suspect]
     Indication: MULTIPLE SCLEROSIS
     Dosage: 0.5 MG, QD
     Route: 048
     Dates: start: 20110329, end: 20110614
  8. LEVOXYL [Concomitant]
     Dosage: UNK UKN, OT
  9. LEVOTHYROXINE SODIUM [Concomitant]
  10. GILENYA [Suspect]

REACTIONS (11)
  - DETACHMENT OF MACULAR RETINAL PIGMENT EPITHELIUM [None]
  - PHOTOPHOBIA [None]
  - MACULAR DEGENERATION [None]
  - METAMORPHOPSIA [None]
  - RETINAL TEAR [None]
  - VISUAL ACUITY REDUCED [None]
  - CATARACT [None]
  - EYE PAIN [None]
  - HEADACHE [None]
  - VISION BLURRED [None]
  - RETINAL OEDEMA [None]
